FAERS Safety Report 9116392 (Version 3)
Quarter: 2013Q2

REPORT INFORMATION
  Report Type: Spontaneous
  Country: PT (occurrence: PT)
  Receive Date: 20130225
  Receipt Date: 20130430
  Transmission Date: 20140414
  Serious: Yes (Other)
  Sender: FDA-Public Use
  Company Number: PT-009507513-1302PRT011048

PATIENT
  Sex: Female

DRUGS (3)
  1. IMPLANON [Suspect]
     Dosage: 1 DF, UNK
     Route: 059
     Dates: start: 20101027
  2. IMPLANON [Suspect]
     Dosage: UNK
     Route: 059
     Dates: end: 20101027
  3. IMPLANON [Suspect]
     Dosage: UNK
     Route: 059
     Dates: end: 20130219

REACTIONS (4)
  - Abortion [Unknown]
  - Unintended pregnancy [Recovered/Resolved]
  - Female sterilisation [Unknown]
  - Weight decreased [Unknown]
